FAERS Safety Report 6207676-7 (Version None)
Quarter: 2009Q2

REPORT INFORMATION
  Report Type: 
  Country: None (occurrence: None)
  Receive Date: 20090528
  Receipt Date: 20090522
  Transmission Date: 20091009
  Serious: Yes (Other)
  Sender: FDA-Public Use
  Company Number: US-AMGEN-KDL342095

PATIENT
  Sex: Male
  Weight: 62 kg

DRUGS (14)
  1. PROCRIT [Suspect]
     Indication: HEPATITIS C
     Route: 058
     Dates: start: 20081003
  2. NEUPOGEN [Suspect]
     Indication: DRUG USE FOR UNKNOWN INDICATION
     Route: 058
     Dates: start: 20080915
  3. REBETOL [Suspect]
     Dates: start: 20080822, end: 20090130
  4. PEG-INTRON [Suspect]
     Dates: start: 20080822, end: 20090130
  5. COMBIVENT [Concomitant]
  6. ALDACTONE [Concomitant]
  7. RESTORIL [Concomitant]
  8. MORPHINE [Concomitant]
  9. OXYCODONE HCL [Concomitant]
  10. TRAZODONE HCL [Concomitant]
  11. SYNTHROID [Concomitant]
  12. PRILOSEC [Concomitant]
  13. LASIX [Concomitant]
  14. PHENERGAN [Concomitant]

REACTIONS (4)
  - DRUG INEFFECTIVE [None]
  - NEUTROPENIA [None]
  - NORMOCHROMIC NORMOCYTIC ANAEMIA [None]
  - THROMBOCYTOPENIA [None]
